FAERS Safety Report 7425210-0 (Version None)
Quarter: 2011Q2

REPORT INFORMATION
  Report Type: 
  Country: None (occurrence: None)
  Receive Date: 20110420
  Receipt Date: 20110406
  Transmission Date: 20111010
  Serious: Yes (Hospitalization)
  Sender: FDA-Public Use
  Company Number: DE-RANBAXY-2011US-43624

PATIENT

DRUGS (12)
  1. CALCIUM BICARBONATE [Concomitant]
     Indication: PRODUCT USED FOR UNKNOWN INDICATION
     Dosage: 500 MG, TID
     Route: 048
  2. CONCOR [Concomitant]
     Indication: RENAL HYPERTENSION
     Route: 048
  3. RECORMON [Concomitant]
     Indication: PRODUCT USED FOR UNKNOWN INDICATION
     Dosage: 10000 IU, 1/WEEK
     Route: 058
  4. PANTOZOL [Suspect]
     Indication: PRODUCT USED FOR UNKNOWN INDICATION
     Dosage: 20 MG, TID
     Route: 048
     Dates: start: 20110219, end: 20110306
  5. CLEXANE [Suspect]
     Indication: PRODUCT USED FOR UNKNOWN INDICATION
     Dosage: 0.2 ML, QD
     Route: 058
     Dates: start: 20110219
  6. DUPHALAC [Concomitant]
     Indication: PRODUCT USED FOR UNKNOWN INDICATION
     Dosage: 1 DF, SINGLE
     Route: 048
     Dates: start: 20110219
  7. NIMITOP [Suspect]
     Indication: SUBARACHNOID HAEMORRHAGE
     Dosage: 30 MG, 12 IN DAY
     Route: 048
     Dates: start: 20110219, end: 20110304
  8. TEMEGESIC [Suspect]
     Indication: PRODUCT USED FOR UNKNOWN INDICATION
     Dosage: 0.4 MG, UNK
     Route: 048
     Dates: start: 20110222, end: 20110301
  9. NEPHROTRANS [Concomitant]
     Indication: PRODUCT USED FOR UNKNOWN INDICATION
     Route: 065
  10. CIPROXINE [Suspect]
     Indication: URINARY TRACT INFECTION
     Dosage: 500MG, 1 IN 2 DAYS
     Route: 048
     Dates: start: 20110224, end: 20110302
  11. DAFALGAN [Suspect]
     Indication: PAIN
     Dosage: 1 G, 4 IN 1 DAY
     Route: 048
     Dates: start: 20110219, end: 20110226
  12. PRAVASTATIN [Suspect]
     Indication: PRODUCT USED FOR UNKNOWN INDICATION
     Dosage: 40 MG, SINGLE
     Route: 048
     Dates: start: 20110221, end: 20110228

REACTIONS (4)
  - CHOLESTASIS [None]
  - LIVER DISORDER [None]
  - TRANSAMINASES INCREASED [None]
  - PANCREATIC ENZYMES INCREASED [None]
